FAERS Safety Report 19888507 (Version 1)
Quarter: 2021Q3

REPORT INFORMATION
  Report Type: Spontaneous
  Country: US (occurrence: US)
  Receive Date: 20210927
  Receipt Date: 20210927
  Transmission Date: 20211014
  Serious: No
  Sender: FDA-Public Use
  Company Number: US-KVK-TECH, INC-20201200019

PATIENT
  Sex: Male
  Weight: 70.3 kg

DRUGS (2)
  1. OXYCODONE HYDROCHLORIDE TABLETS, USP [Suspect]
     Active Substance: OXYCODONE HYDROCHLORIDE
     Indication: ARTHRITIS
     Dosage: 5 MILLIGRAM, BID (PREVIOUS BATCH)
     Route: 065
  2. OXYCODONE HYDROCHLORIDE TABLETS, USP [Suspect]
     Active Substance: OXYCODONE HYDROCHLORIDE
     Indication: SPONDYLITIS
     Dosage: 5 MILLIGRAM, QD
     Route: 065

REACTIONS (7)
  - Headache [Unknown]
  - Heart rate increased [Unknown]
  - Product quality issue [Unknown]
  - Drug ineffective [Unknown]
  - Malaise [Unknown]
  - Dysgeusia [Unknown]
  - Abdominal pain upper [Unknown]
